FAERS Safety Report 6398009-4 (Version None)
Quarter: 2009Q4

REPORT INFORMATION
  Report Type: 
  Country: None (occurrence: None)
  Receive Date: 20091013
  Receipt Date: 20091006
  Transmission Date: 20100525
  Serious: Yes (Life-Threatening)
  Sender: FDA-Public Use
  Company Number: FR-ROCHE-622840

PATIENT
  Sex: Male
  Weight: 64 kg

DRUGS (22)
  1. PEG-INTERFERON ALFA 2A (RO 25-8310) [Suspect]
     Indication: ANAEMIA OF CHRONIC DISEASE
     Route: 065
     Dates: start: 20081007
  2. EPOETIN BETA [Suspect]
     Indication: ANAEMIA OF CHRONIC DISEASE
     Route: 058
     Dates: start: 20090115
  3. EPOETIN BETA [Suspect]
     Route: 058
  4. RIBAVIRIN [Suspect]
     Indication: ANAEMIA OF CHRONIC DISEASE
     Route: 065
     Dates: start: 20081007
  5. VIREAD [Concomitant]
     Dates: start: 20051122
  6. EPIVIR [Concomitant]
     Dates: start: 20051122
  7. PROPRANOLOL HCL [Concomitant]
     Dates: start: 20051123
  8. LEVOCARNIL [Concomitant]
     Dates: start: 20060427
  9. COLCHICINE HOUDE [Concomitant]
     Dates: start: 20061221
  10. NORVIR [Concomitant]
     Dates: start: 20070925
  11. TELZIR [Concomitant]
     Dates: start: 20080111
  12. IMODIUM [Concomitant]
     Dates: start: 20080922
  13. SPECIAFOLDINE [Concomitant]
     Dates: start: 20081007
  14. DEROXAT [Concomitant]
     Dates: start: 20090223
  15. FORTIMEL [Concomitant]
     Dates: start: 20090223
  16. NEUPOGEN 30 [Concomitant]
     Dosage: 2 INJECTION PER WEEK.
     Dates: start: 20090302
  17. SULFARLEM S 25 [Concomitant]
     Dates: start: 20090306
  18. TRIFLUCAN [Concomitant]
     Dates: start: 20090310
  19. DEXERYL [Concomitant]
     Dates: start: 20090310
  20. LOVENOX [Concomitant]
     Dosage: DOSE: 1 INJECTION PAR JOUR.
     Dates: start: 20090310
  21. ROCEPHINE INTRAVENOUS [Concomitant]
     Route: 042
     Dates: start: 20090311
  22. TARDYFERON [Concomitant]
     Dates: start: 20090317

REACTIONS (1)
  - HEPATIC ENCEPHALOPATHY [None]
